FAERS Safety Report 8530737-4 (Version None)
Quarter: 2012Q3

REPORT INFORMATION
  Report Type: 
  Country: None (occurrence: None)
  Receive Date: 20120723
  Receipt Date: 20120713
  Transmission Date: 20120928
  Serious: Yes (Other)
  Sender: FDA-Public Use
  Company Number: PHHY2012BR061051

PATIENT
  Sex: Female

DRUGS (7)
  1. INFLUENZA VIRUS VACC SEASONAL INN [Suspect]
     Indication: IMMUNISATION
  2. ALENIA [Suspect]
     Indication: ASTHMA
     Dosage: 3 INHALATIONS DAILY
  3. XOLAIR [Suspect]
     Indication: ASTHMA
     Dosage: 2 AMPOULES EVERY 15 DAYS
     Route: 058
     Dates: start: 20110901
  4. FORMOTEROL FUMARATE [Suspect]
     Indication: ASTHMA
     Dosage: 3 INHALATIONS (12/400 MCG ) DAILY
  5. OFTALMINA [Concomitant]
     Indication: ABDOMINAL DISCOMFORT
     Dosage: 2 TABLETS (40 MG) AFTER THE LUNCH
     Route: 048
  6. POLARAMINE [Concomitant]
     Dosage: 100 MG, UNK
     Dates: start: 20120101
  7. FORMOTEROL FUMARATE [Suspect]
     Dosage: 3 INHALATIONS (12/400 MCG ) DAILY

REACTIONS (8)
  - GAIT DISTURBANCE [None]
  - DIZZINESS [None]
  - IMMUNODEFICIENCY [None]
  - MALAISE [None]
  - ARTHRALGIA [None]
  - INFLUENZA [None]
  - ASTHENIA [None]
  - DYSPNOEA [None]
